FAERS Safety Report 14887197 (Version 1)
Quarter: 2018Q2

REPORT INFORMATION
  Report Type: Spontaneous
  Country: US (occurrence: US)
  Receive Date: 20180513
  Receipt Date: 20180513
  Transmission Date: 20180711
  Serious: No
  Sender: FDA-Public Use
  Company Number: US-ASTRAZENECA-2018SE53262

PATIENT
  Sex: Female
  Weight: 60.3 kg

DRUGS (2)
  1. CRESTOR [Suspect]
     Active Substance: ROSUVASTATIN CALCIUM
     Indication: BLOOD CHOLESTEROL INCREASED
     Dosage: 5.0MG UNKNOWN
     Route: 048
  2. SYNTHROID [Concomitant]
     Active Substance: LEVOTHYROXINE SODIUM
     Indication: THYROID DISORDER

REACTIONS (7)
  - Pollakiuria [Unknown]
  - Confusional state [Not Recovered/Not Resolved]
  - Hyperchlorhydria [Unknown]
  - Dry throat [Unknown]
  - Cough [Unknown]
  - Asthma [Unknown]
  - Memory impairment [Not Recovered/Not Resolved]
